FAERS Safety Report 9207952 (Version 2)
Quarter: 2013Q2

REPORT INFORMATION
  Report Type: Report from Study
  Country: US (occurrence: US)
  Receive Date: 20130403
  Receipt Date: 20130411
  Transmission Date: 20140414
  Serious: Yes (Other)
  Sender: FDA-Public Use
  Company Number: US-US-EMD SERONO, INC.-7202230

PATIENT
  Age: 56 Year
  Sex: Female
  Weight: 106 kg

DRUGS (4)
  1. REBIF [Suspect]
     Indication: MULTIPLE SCLEROSIS
     Route: 058
     Dates: start: 20071203
  2. LAMICTAL [Concomitant]
     Indication: BIPOLAR DISORDER
  3. XANAX [Concomitant]
     Indication: PRODUCT USED FOR UNKNOWN INDICATION
  4. CYMBALTA [Concomitant]
     Indication: DEPRESSION

REACTIONS (4)
  - Type 2 diabetes mellitus [Unknown]
  - Cushing^s syndrome [Unknown]
  - Carcinoid tumour [Unknown]
  - Hypothyroidism [Unknown]
